FAERS Safety Report 10033827 (Version 1)
Quarter: 2014Q1

REPORT INFORMATION
  Report Type: Spontaneous
  Country: US (occurrence: US)
  Receive Date: 20140325
  Receipt Date: 20140325
  Transmission Date: 20141002
  Serious: No
  Sender: FDA-Public Use
  Company Number: US-BIOGENIDEC-2014BI025699

PATIENT
  Sex: Male

DRUGS (11)
  1. TECFIDERA [Suspect]
     Indication: MULTIPLE SCLEROSIS
     Route: 048
     Dates: start: 20131114, end: 20131121
  2. TECFIDERA [Suspect]
     Indication: MULTIPLE SCLEROSIS
     Route: 048
     Dates: start: 20131121
  3. METFORMIN [Concomitant]
  4. BACLOFEN [Concomitant]
  5. BENAZEPRIL [Concomitant]
  6. CRESTOR [Concomitant]
  7. GLIMPRIDE [Concomitant]
  8. CITALOPRAM [Concomitant]
  9. LANTUS INSULIN [Concomitant]
  10. FISH OIL [Concomitant]
  11. VIT D3 [Concomitant]

REACTIONS (3)
  - Asthenia [Not Recovered/Not Resolved]
  - Flushing [Not Recovered/Not Resolved]
  - Pruritus [Not Recovered/Not Resolved]
